FAERS Safety Report 5044231-9 (Version None)
Quarter: 2006Q3

REPORT INFORMATION
  Report Type: 
  Country: None (occurrence: None)
  Receive Date: 20060706
  Receipt Date: 20060628
  Transmission Date: 20061208
  Serious: Yes (Hospitalization)
  Sender: FDA-Public Use
  Company Number: ZA-ROCHE-453569

PATIENT
  Age: 72 Year
  Sex: Female
  Weight: 88.5 kg

DRUGS (2)
  1. INTERFERON ALFA-2A [Suspect]
     Indication: NON-HODGKIN'S LYMPHOMA
     Route: 058
     Dates: start: 20030911, end: 20030929
  2. RITUXIMAB [Suspect]
     Indication: NON-HODGKIN'S LYMPHOMA
     Route: 042
     Dates: start: 20030911, end: 20030929

REACTIONS (1)
  - DEHYDRATION [None]
